FAERS Safety Report 6537776-3 (Version None)
Quarter: 2010Q1

REPORT INFORMATION
  Report Type: 
  Country: None (occurrence: None)
  Receive Date: 20100114
  Receipt Date: 20100105
  Transmission Date: 20100710
  Serious: Yes (Other)
  Sender: FDA-Public Use
  Company Number: US-PFIZER INC-2010001934

PATIENT
  Sex: Female

DRUGS (2)
  1. FLAGYL [Suspect]
     Indication: ONYCHOMYCOSIS
  2. FLAGYL [Suspect]
     Indication: ORAL CANDIDIASIS

REACTIONS (3)
  - EAR PAIN [None]
  - ECCHYMOSIS [None]
  - PRURITUS [None]
